FAERS Safety Report 25034961 (Version 2)
Quarter: 2025Q2

REPORT INFORMATION
  Report Type: Report from Study
  Country: US (occurrence: US)
  Receive Date: 20250304
  Receipt Date: 20250506
  Transmission Date: 20250716
  Serious: No
  Sender: AMGEN
  Company Number: US-AMGEN-USASP2025040266

PATIENT
  Age: 64 Year
  Sex: Male

DRUGS (2)
  1. KRYSTEXXA [Suspect]
     Active Substance: PEGLOTICASE
     Indication: Gouty tophus
     Dosage: UNK, Q2WK (EVERY 2 WEEKS)
     Route: 040
     Dates: start: 20240924
  2. KRYSTEXXA [Suspect]
     Active Substance: PEGLOTICASE
     Dosage: UNK, Q2WK (EVERY 2 WEEKS) (12TH INFUSION)
     Route: 040
     Dates: start: 20250226

REACTIONS (3)
  - Muscle spasms [Recovered/Resolved]
  - Gout [Unknown]
  - Asthenia [Recovering/Resolving]

NARRATIVE: CASE EVENT DATE: 20250226
